FAERS Safety Report 17907483 (Version 1)
Quarter: 2020Q2

REPORT INFORMATION
  Report Type: Spontaneous
  Country: US (occurrence: US)
  Receive Date: 20200617
  Receipt Date: 20200617
  Transmission Date: 20200714
  Serious: No
  Sender: FDA-Public Use
  Company Number: None

PATIENT
  Sex: Female

DRUGS (11)
  1. ARIPIPRAZOLE 30MG [Concomitant]
     Active Substance: ARIPIPRAZOLE
     Dates: end: 20200616
  2. DILTIAZEM CD 180MG [Concomitant]
     Dates: end: 20200616
  3. FUROSEMIDE 40MG [Concomitant]
     Active Substance: FUROSEMIDE
     Dates: end: 20200616
  4. LEVOTHYROXINE 25MCG [Concomitant]
     Active Substance: LEVOTHYROXINE
     Dates: end: 20200616
  5. PREDNISONE 5MG [Concomitant]
     Active Substance: PREDNISONE
     Dates: end: 20200616
  6. DIVAPROLEX DR 500MG [Concomitant]
     Dates: end: 20200616
  7. BUPRIOPION SR 150MG [Concomitant]
     Dates: end: 20200616
  8. MYCOPHENOLIC ACID 180MG [Concomitant]
     Dates: end: 20200616
  9. METOPROLOL TARTRATE 25MG [Concomitant]
     Active Substance: METOPROLOL TARTRATE
     Dates: end: 20200616
  10. MYCOPHENOLIC ACID 360MG [Concomitant]
     Active Substance: MYCOPHENOLIC ACID
     Dates: end: 20200616
  11. ENVARSUS XR [Suspect]
     Active Substance: TACROLIMUS
     Indication: RENAL TRANSPLANT
     Route: 048

REACTIONS (1)
  - Death [None]
